FAERS Safety Report 18134768 (Version 3)
Quarter: 2021Q3

REPORT INFORMATION
  Report Type: Other
  Country: US (occurrence: US)
  Receive Date: 20200811
  Receipt Date: 20210723
  Transmission Date: 20211014
  Serious: Yes (Other)
  Sender: FDA-Public Use
  Company Number: US-ROCHE-1965200

PATIENT
  Sex: Male
  Weight: 108.05 kg

DRUGS (18)
  1. TURMERIC [Concomitant]
     Active Substance: HERBALS\TURMERIC
     Dosage: ONGOING YES
     Route: 048
  2. GLIPIZIDE. [Concomitant]
     Active Substance: GLIPIZIDE
     Indication: DIABETES MELLITUS
     Dosage: ONGOING YES
     Route: 048
     Dates: start: 2019
  3. VITAMIN D3 [Concomitant]
     Active Substance: CHOLECALCIFEROL
     Dosage: ONGOING YES
     Route: 048
  4. TRULICITY [Concomitant]
     Active Substance: DULAGLUTIDE
     Dosage: 0.75MG/0.5ML; ONGOING: YES
     Route: 058
  5. METHENAMINE [Concomitant]
     Active Substance: METHENAMINE
     Indication: DIABETES MELLITUS
     Dosage: ONGOING YES
     Route: 048
  6. OCREVUS [Suspect]
     Active Substance: OCRELIZUMAB
     Dosage: ONGOING: YES; INFUSION,300MG/10 ML, 2 OF THESE EQUALS 600MG/20ML?DATE OF TREATMENT: 13/MAY/2019, 11/
     Route: 042
  7. BACLOFEN. [Concomitant]
     Active Substance: BACLOFEN
     Indication: MUSCLE SPASTICITY
     Dosage: TAKE 1 TABLET (20MG TOTAL DOSE?ONGOING YES
     Route: 048
     Dates: start: 2007
  8. TAMSULOSIN [Concomitant]
     Active Substance: TAMSULOSIN
     Dosage: ONGOING YES
     Route: 048
  9. OCREVUS [Suspect]
     Active Substance: OCRELIZUMAB
     Route: 042
     Dates: start: 20180516
  10. AMANTADINE. [Concomitant]
     Active Substance: AMANTADINE HYDROCHLORIDE
     Dosage: ONGOING YES
     Route: 048
  11. RITUXAN [Suspect]
     Active Substance: RITUXIMAB
     Indication: MULTIPLE SCLEROSIS
     Dosage: ADMINISTERED ONE TIME
     Route: 041
     Dates: start: 2017
  12. METFORMIN [Concomitant]
     Active Substance: METFORMIN HYDROCHLORIDE
     Indication: DIABETES MELLITUS
     Dosage: ONGOING YES?TAKE 2 TABLETS (500MG TOTAL DOSE)
     Route: 048
  13. OCREVUS [Suspect]
     Active Substance: OCRELIZUMAB
     Indication: RELAPSING-REMITTING MULTIPLE SCLEROSIS
     Dosage: PT HAD SCHEDULED TREATMENT ON (15?JUL?2020)
     Route: 042
  14. CIPROFLOXACIN. [Concomitant]
     Active Substance: CIPROFLOXACIN
     Route: 048
  15. CRANBERRY. [Concomitant]
     Active Substance: CRANBERRY
     Indication: URINARY TRACT INFECTION
     Dosage: ONGOING YES
     Route: 048
  16. ALFA LIPOIC ACID [Concomitant]
     Dosage: ONGOING YES
     Route: 048
  17. CBD OIL [Concomitant]
     Active Substance: CANNABIDIOL\HERBALS
     Indication: MUSCLE SPASTICITY
     Dosage: TAKEN IN THE EVENING?ONGOING YES
     Route: 060
  18. AMPYRA [Concomitant]
     Active Substance: DALFAMPRIDINE
     Dosage: ONGOING YES
     Route: 048

REACTIONS (5)
  - Fall [Unknown]
  - Off label use [Unknown]
  - Neuropathy peripheral [Unknown]
  - Urinary tract infection [Recovered/Resolved]
  - Opportunistic infection [Not Recovered/Not Resolved]

NARRATIVE: CASE EVENT DATE: 2018
